FAERS Safety Report 11248114 (Version 2)
Quarter: 2015Q3

REPORT INFORMATION
  Report Type: Report from Study
  Country: US (occurrence: US)
  Receive Date: 20150708
  Receipt Date: 20150903
  Transmission Date: 20151125
  Serious: No
  Sender: FDA-Public Use
  Company Number: PHEH2015US012123

PATIENT
  Sex: Female
  Weight: 72.57 kg

DRUGS (1)
  1. GILENYA [Suspect]
     Active Substance: FINGOLIMOD HYDROCHLORIDE
     Indication: MULTIPLE SCLEROSIS
     Dosage: 0.5 MG, QD
     Route: 048
     Dates: start: 20150518

REACTIONS (7)
  - Retching [Unknown]
  - Hyperhidrosis [Unknown]
  - Malaise [Unknown]
  - Weight increased [Unknown]
  - Nystagmus [Recovering/Resolving]
  - Vomiting [Unknown]
  - White blood cell count decreased [Unknown]
